FAERS Safety Report 9209103 (Version 1)
Quarter: 2013Q2

REPORT INFORMATION
  Report Type: Spontaneous
  Country: US (occurrence: US)
  Receive Date: 20130404
  Receipt Date: 20130404
  Transmission Date: 20140414
  Serious: Yes (Other)
  Sender: FDA-Public Use
  Company Number: PHEH2013US005774

PATIENT
  Sex: Female

DRUGS (4)
  1. AFINITOR [Suspect]
     Dosage: 10 MG
     Dates: start: 201209
  2. SUTENT [Suspect]
  3. WARFARIN [Concomitant]
  4. NORVASC [Concomitant]

REACTIONS (2)
  - Organ failure [Unknown]
  - Drug administration error [Unknown]
